FAERS Safety Report 15067747 (Version 2)
Quarter: 2018Q3

REPORT INFORMATION
  Report Type: Spontaneous
  Country: US (occurrence: US)
  Receive Date: 20180626
  Receipt Date: 20180710
  Transmission Date: 20181010
  Serious: Yes (Hospitalization)
  Sender: FDA-Public Use
  Company Number: US-ROCHE-2145601

PATIENT
  Age: 83 Year
  Sex: Male
  Weight: 85.35 kg

DRUGS (5)
  1. ELIQUIS [Concomitant]
     Active Substance: APIXABAN
  2. ACTEMRA [Suspect]
     Active Substance: TOCILIZUMAB
     Indication: TEMPORAL ARTERITIS
  3. ACTEMRA [Suspect]
     Active Substance: TOCILIZUMAB
     Indication: TEMPORAL ARTERITIS
     Route: 058
     Dates: start: 20180530, end: 20180613
  4. HEPARIN [Concomitant]
     Active Substance: HEPARIN SODIUM
  5. PREDNISONE. [Concomitant]
     Active Substance: PREDNISONE
     Indication: TEMPORAL ARTERITIS

REACTIONS (3)
  - Pulmonary embolism [Unknown]
  - Diverticulitis [Unknown]
  - Infection [Unknown]

NARRATIVE: CASE EVENT DATE: 201806
